FAERS Safety Report 6245562-7 (Version None)
Quarter: 2009Q2

REPORT INFORMATION
  Report Type: 
  Country: None (occurrence: None)
  Receive Date: 20090625
  Receipt Date: 20090616
  Transmission Date: 20091009
  Serious: Yes (Other)
  Sender: FDA-Public Use
  Company Number: HR-NOVOPROD-288487

PATIENT
  Age: 50 Year
  Sex: Female

DRUGS (3)
  1. ACTIVELLE [Suspect]
     Indication: HORMONE REPLACEMENT THERAPY
     Dosage: 1 TAB, QD
     Route: 048
     Dates: start: 20090410
  2. VITAMIN C                          /00008001/ [Concomitant]
     Indication: DRUG USE FOR UNKNOWN INDICATION
     Dosage: UNKNOWN
     Route: 048
  3. OMEGA 3-6-9 [Concomitant]
     Indication: DRUG USE FOR UNKNOWN INDICATION
     Dosage: UNKNOWN

REACTIONS (3)
  - DEPRESSION [None]
  - MIGRAINE [None]
  - VISUAL IMPAIRMENT [None]
